FAERS Safety Report 17291220 (Version 1)
Quarter: 2020Q1

REPORT INFORMATION
  Report Type: Spontaneous
  Country: US (occurrence: US)
  Receive Date: 20200121
  Receipt Date: 20200121
  Transmission Date: 20200409
  Serious: Yes (Hospitalization)
  Sender: FDA-Public Use
  Company Number: US-TEVA-2020-US-1171105

PATIENT
  Age: 41 Year
  Sex: Female

DRUGS (2)
  1. INSULIN [Concomitant]
     Active Substance: INSULIN NOS
     Indication: TYPE 2 DIABETES MELLITUS
     Route: 065
  2. ALBUTEROL. [Suspect]
     Active Substance: ALBUTEROL
     Indication: ASTHMA
     Route: 050

REACTIONS (1)
  - Lactic acidosis [Recovered/Resolved]
